FAERS Safety Report 9784691 (Version 2)
Quarter: 2014Q1

REPORT INFORMATION
  Report Type: Spontaneous
  Country: US (occurrence: US)
  Receive Date: 20131226
  Receipt Date: 20140117
  Transmission Date: 20141002
  Serious: Yes (Other)
  Sender: FDA-Public Use
  Company Number: US-AMGEN-USASP2013090009

PATIENT
  Age: 62 Year
  Sex: Female

DRUGS (1)
  1. ENBREL [Suspect]
     Indication: RHEUMATOID ARTHRITIS
     Dosage: 50 MG, QWK
     Route: 065
     Dates: start: 20100101

REACTIONS (5)
  - Asthma [Not Recovered/Not Resolved]
  - Emphysema [Not Recovered/Not Resolved]
  - Swelling face [Recovered/Resolved]
  - Respiration abnormal [Not Recovered/Not Resolved]
  - Local swelling [Not Recovered/Not Resolved]
